FAERS Safety Report 5692778-4 (Version None)
Quarter: 2008Q2

REPORT INFORMATION
  Report Type: 
  Country: None (occurrence: None)
  Receive Date: 20080401
  Receipt Date: 20080317
  Transmission Date: 20081010
  Serious: Yes (Life-Threatening)
  Sender: FDA-Public Use
  Company Number: 2008S1004513

PATIENT
  Age: 45 Year
  Sex: Male

DRUGS (3)
  1. FLUOXETINE HCL [Suspect]
     Indication: DRUG USE FOR UNKNOWN INDICATION
     Dosage: 20 MG;
     Dates: start: 20080218, end: 20080227
  2. DICLOFENAC SODIUM [Concomitant]
  3. FLOXACILLIN SODIUM [Concomitant]

REACTIONS (4)
  - ANXIETY [None]
  - CONDITION AGGRAVATED [None]
  - FEELING ABNORMAL [None]
  - SUICIDAL IDEATION [None]
